FAERS Safety Report 9386841 (Version 1)
Quarter: 2013Q3

REPORT INFORMATION
  Report Type: Spontaneous
  Country: US (occurrence: US)
  Receive Date: 20130708
  Receipt Date: 20130708
  Transmission Date: 20140515
  Serious: No
  Sender: FDA-Public Use
  Company Number: US-B.I. PHARMACEUTICALS,INC./RIDGEFIELD-2013-BI-19073BP

PATIENT
  Sex: Female
  Weight: 61 kg

DRUGS (3)
  1. COMBIVENT [Suspect]
     Indication: CHRONIC OBSTRUCTIVE PULMONARY DISEASE
     Dosage: STRENGTH: 18 MCG / 103 MCG;
     Route: 055
  2. ALBUTEROL [Concomitant]
  3. SEREVENT [Concomitant]

REACTIONS (4)
  - Pneumonia [Recovered/Resolved]
  - Oxygen supplementation [Not Recovered/Not Resolved]
  - Expired drug administered [Unknown]
  - Incorrect drug administration rate [Not Recovered/Not Resolved]
